FAERS Safety Report 9765857 (Version 3)
Quarter: 2014Q2

REPORT INFORMATION
  Report Type: Spontaneous
  Country: US (occurrence: US)
  Receive Date: 20131217
  Receipt Date: 20140618
  Transmission Date: 20141212
  Serious: No
  Sender: FDA-Public Use
  Company Number: US-BIOGENIDEC-2013BI116005

PATIENT
  Age: 58 Year
  Sex: Male

DRUGS (4)
  1. TECFIDERA [Suspect]
     Indication: MULTIPLE SCLEROSIS
     Route: 048
     Dates: start: 20131114, end: 20131120
  2. TECFIDERA [Suspect]
     Indication: MULTIPLE SCLEROSIS
     Route: 048
     Dates: start: 20131116, end: 20131123
  3. TECFIDERA [Suspect]
     Indication: MULTIPLE SCLEROSIS
     Route: 048
     Dates: start: 20131121
  4. TECFIDERA [Suspect]
     Indication: MULTIPLE SCLEROSIS
     Route: 048
     Dates: start: 20131123

REACTIONS (8)
  - Muscle spasms [Not Recovered/Not Resolved]
  - Multiple sclerosis [Unknown]
  - Stress [Unknown]
  - Hemiparesis [Unknown]
  - Gait disturbance [Unknown]
  - Paraesthesia [Unknown]
  - Multiple sclerosis relapse [Not Recovered/Not Resolved]
  - Flushing [Not Recovered/Not Resolved]
